FAERS Safety Report 15122467 (Version 1)
Quarter: 2018Q3

REPORT INFORMATION
  Report Type: Spontaneous
  Country: DE (occurrence: DE)
  Receive Date: 20180709
  Receipt Date: 20180709
  Transmission Date: 20181010
  Serious: Yes (Hospitalization)
  Sender: FDA-Public Use
  Company Number: PHHY2018DE038191

PATIENT
  Age: 87 Year
  Sex: Male
  Weight: 75 kg

DRUGS (8)
  1. METOPROLOL. [Suspect]
     Active Substance: METOPROLOL
     Indication: PRODUCT USED FOR UNKNOWN INDICATION
     Dosage: 47.5 MG, BID (0.5?0?1?0)
     Route: 048
  2. APIXABAN [Concomitant]
     Active Substance: APIXABAN
     Indication: PRODUCT USED FOR UNKNOWN INDICATION
     Dosage: 2.5 MG, BID  (1?0?1?0)
     Route: 048
  3. HYDROXYCHLOROQUINE [Concomitant]
     Active Substance: HYDROXYCHLOROQUINE
     Indication: PRODUCT USED FOR UNKNOWN INDICATION
     Dosage: 200 MG, BID (1?0?1?0)
     Route: 048
  4. DUTASTERIDE. [Concomitant]
     Active Substance: DUTASTERIDE
     Indication: PRODUCT USED FOR UNKNOWN INDICATION
     Dosage: 1?0?0?0
     Route: 048
  5. ACETYLSALICYLSAEURE [Concomitant]
     Active Substance: ASPIRIN
     Indication: PRODUCT USED FOR UNKNOWN INDICATION
     Dosage: 1000 MG, QD (0?1?0?0)
     Route: 048
  6. PANTOPRAZOL [Concomitant]
     Active Substance: PANTOPRAZOLE SODIUM
     Indication: PRODUCT USED FOR UNKNOWN INDICATION
     Dosage: 40 MG, QD (1?0?0?0)
     Route: 048
  7. PREDNISOLONE. [Concomitant]
     Active Substance: PREDNISOLONE
     Indication: PRODUCT USED FOR UNKNOWN INDICATION
     Dosage: 5 MG, UNK (1.5?0?0?0)
     Route: 048
  8. MELPERONE [Concomitant]
     Active Substance: MELPERONE
     Indication: PRODUCT USED FOR UNKNOWN INDICATION
     Dosage: 25 MG, PRN (NEED JUICE)
     Route: 048

REACTIONS (3)
  - Dizziness [Unknown]
  - General physical health deterioration [Unknown]
  - Bradycardia [Unknown]
